FAERS Safety Report 8308050-X (Version None)
Quarter: 2012Q2

REPORT INFORMATION
  Report Type: 
  Country: None (occurrence: None)
  Receive Date: 20120424
  Receipt Date: 20110725
  Transmission Date: 20120825
  Serious: No
  Sender: FDA-Public Use
  Company Number: US-MYLANLABS-2011S1013270

PATIENT
  Age: 63 Year
  Sex: Female

DRUGS (2)
  1. PROMETHAZINE [Concomitant]
     Indication: NAUSEA
  2. BUSPIRONE HCL [Suspect]
     Indication: ANXIETY
     Dates: start: 20110617, end: 20110620

REACTIONS (6)
  - ABDOMINAL DISCOMFORT [None]
  - ABDOMINAL PAIN UPPER [None]
  - FEELING ABNORMAL [None]
  - TREMOR [None]
  - RESTLESSNESS [None]
  - LIP SWELLING [None]
